FAERS Safety Report 4557329-6 (Version None)
Quarter: 2005Q1

REPORT INFORMATION
  Report Type: 
  Country: None (occurrence: None)
  Receive Date: 20050119
  Receipt Date: 20050119
  Transmission Date: 20050727
  Serious: Yes (Death)
  Sender: FDA-Public Use
  Company Number: None

PATIENT
  Sex: Female
  Weight: 68.4932 kg

DRUGS (9)
  1. IRESSA [Suspect]
     Indication: PANCREATIC CARCINOMA
     Dosage: 250 MG   DAILY    ORAL
     Route: 048
     Dates: start: 20041004, end: 20041130
  2. RADIATION THERAPY [Concomitant]
  3. PACILTACEL [Concomitant]
  4. VICODIN [Concomitant]
  5. GLIPIZIDE [Concomitant]
  6. METFORMIN HCL [Concomitant]
  7. LOVASTATIN [Concomitant]
  8. COMPAZINE [Concomitant]
  9. LOMOTIL [Concomitant]

REACTIONS (6)
  - DIARRHOEA [None]
  - DRUG TOXICITY [None]
  - GENERAL PHYSICAL HEALTH DETERIORATION [None]
  - METASTASES TO LIVER [None]
  - NAUSEA [None]
  - PERITONEAL INFECTION [None]
